FAERS Safety Report 10079666 (Version 2)
Quarter: 2014Q2

REPORT INFORMATION
  Report Type: Spontaneous
  Country: US (occurrence: US)
  Receive Date: 20140415
  Receipt Date: 20140418
  Transmission Date: 20141212
  Serious: Yes (Other)
  Sender: FDA-Public Use
  Company Number: US-BRISTOL-MYERS SQUIBB COMPANY-20625364

PATIENT
  Sex: Female

DRUGS (2)
  1. ABILIFY [Suspect]
     Indication: SCHIZOAFFECTIVE DISORDER
     Dosage: DOSE INCREASE TO 20MG.
     Route: 048
     Dates: start: 2005, end: 2010
  2. LAMOTRIGINE [Concomitant]

REACTIONS (3)
  - Schizoaffective disorder [Unknown]
  - Anxiety [Recovered/Resolved]
  - Off label use [Unknown]
